FAERS Safety Report 10096749 (Version 2)
Quarter: 2014Q2

REPORT INFORMATION
  Report Type: Spontaneous
  Country: NL (occurrence: NL)
  Receive Date: 20140422
  Receipt Date: 20140422
  Transmission Date: 20141212
  Serious: Yes (Death, Hospitalization, Other)
  Sender: FDA-Public Use
  Company Number: PHHY2014NL041379

PATIENT
  Age: 33 Year
  Sex: Male

DRUGS (1)
  1. RISPERIDONE [Suspect]

REACTIONS (11)
  - Asphyxia [Fatal]
  - Coma [Unknown]
  - Brain oedema [Unknown]
  - Circulatory collapse [Unknown]
  - Epilepsy [Unknown]
  - Tongue biting [Unknown]
  - Urinary incontinence [Unknown]
  - Polydipsia psychogenic [Unknown]
  - Hyponatraemia [Unknown]
  - Inappropriate antidiuretic hormone secretion [Unknown]
  - Blood antidiuretic hormone increased [Unknown]
